FAERS Safety Report 21975541 (Version 2)
Quarter: 2023Q2

REPORT INFORMATION
  Report Type: Spontaneous
  Country: US (occurrence: US)
  Receive Date: 20230210
  Receipt Date: 20230504
  Transmission Date: 20230722
  Serious: No
  Sender: FDA-Public Use
  Company Number: US-BRISTOL-MYERS SQUIBB COMPANY-2023-019545

PATIENT
  Age: 77 Year
  Sex: Female

DRUGS (1)
  1. REVLIMID [Suspect]
     Active Substance: LENALIDOMIDE
     Indication: Plasma cell myeloma
     Dosage: DAYS 1-7 AND 15-21 EVERY 28 DAYS
     Route: 048
     Dates: start: 20190614

REACTIONS (3)
  - White blood cell count decreased [Unknown]
  - Red blood cell count decreased [Unknown]
  - Off label use [Unknown]
